FAERS Safety Report 24738692 (Version 4)
Quarter: 2025Q1

REPORT INFORMATION
  Report Type: Spontaneous
  Country: CH (occurrence: CH)
  Receive Date: 20241216
  Receipt Date: 20250123
  Transmission Date: 20250409
  Serious: No
  Sender: PFIZER
  Company Number: CH-PFIZER INC-202400321254

PATIENT
  Age: 39 Year
  Sex: Male
  Weight: 97 kg

DRUGS (2)
  1. GENOTROPIN [Suspect]
     Active Substance: SOMATROPIN
     Indication: Hepatic steatosis
     Dates: start: 20241001
  2. GENOTROPIN [Suspect]
     Active Substance: SOMATROPIN
     Indication: Metabolic disorder

REACTIONS (5)
  - Device use error [Unknown]
  - Device difficult to use [Unknown]
  - Device mechanical issue [Unknown]
  - Device leakage [Unknown]
  - Off label use [Unknown]

NARRATIVE: CASE EVENT DATE: 20241001
